FAERS Safety Report 4435278-1 (Version None)
Quarter: 2004Q3

REPORT INFORMATION
  Report Type: 
  Country: None (occurrence: None)
  Receive Date: 20040826
  Receipt Date: 20040826
  Transmission Date: 20050211
  Serious: Yes (Death)
  Sender: FDA-Public Use
  Company Number: None

PATIENT
  Age: 76 Year
  Sex: Male
  Weight: 86.1834 kg

DRUGS (3)
  1. ESTRAMUSTINE [Suspect]
     Indication: PROSTATE CANCER
     Dates: start: 20040628, end: 20040711
  2. TAXOL [Suspect]
     Dates: start: 20040628, end: 20040711
  3. ETOPOSIDE [Suspect]

REACTIONS (6)
  - ASTHENIA [None]
  - COMA [None]
  - HYPOTENSION [None]
  - NEUTROPENIA [None]
  - NEUTROPENIC SEPSIS [None]
  - THROMBOCYTOPENIA [None]
